FAERS Safety Report 8431152-4 (Version None)
Quarter: 2012Q2

REPORT INFORMATION
  Report Type: 
  Country: None (occurrence: None)
  Receive Date: 20120612
  Receipt Date: 20120529
  Transmission Date: 20120825
  Serious: Yes (Other)
  Sender: FDA-Public Use
  Company Number: CHPA2012US011544

PATIENT
  Sex: Female

DRUGS (1)
  1. EXCEDRIN (MIGRAINE) [Suspect]
     Indication: MIGRAINE
     Dosage: 1-2 DF, PRN
     Route: 048
     Dates: start: 20020101

REACTIONS (4)
  - HAEMORRHAGE [None]
  - HAEMOGLOBIN DECREASED [None]
  - UNDERDOSE [None]
  - DRUG INEFFECTIVE [None]
